FAERS Safety Report 5832066-6 (Version None)
Quarter: 2008Q3

REPORT INFORMATION
  Report Type: 
  Country: None (occurrence: None)
  Receive Date: 20080804
  Receipt Date: 20080725
  Transmission Date: 20090109
  Serious: Yes (Other)
  Sender: FDA-Public Use
  Company Number: US-ROCHE-496410

PATIENT
  Sex: Female
  Weight: 9.3 kg

DRUGS (4)
  1. COPEGUS [Suspect]
     Dates: start: 20060730, end: 20061101
  2. PEGASYS [Suspect]
     Dates: start: 20060730, end: 20061101
  3. DEPAKOTE [Concomitant]
     Indication: BIPOLAR DISORDER
     Dates: end: 20070101
  4. VITAMIN TAB [Concomitant]
     Dosage: TOTAL DOSE REPOTED AS '1 TABLET'
     Dates: start: 20070201

REACTIONS (1)
  - STRIDOR [None]
